FAERS Safety Report 25989773 (Version 1)
Quarter: 2025Q4

REPORT INFORMATION
  Report Type: Spontaneous
  Country: CN (occurrence: CN)
  Receive Date: 20251103
  Receipt Date: 20251103
  Transmission Date: 20260117
  Serious: Yes (Hospitalization, Other)
  Sender: SANOFI AVENTIS
  Company Number: CN-SA-2025SA320071

PATIENT
  Age: 77 Year
  Sex: Male
  Weight: 65 kg

DRUGS (4)
  1. CLOPIDOGREL BISULFATE [Suspect]
     Active Substance: CLOPIDOGREL BISULFATE
     Indication: Thrombosis
     Dosage: 75 MG, QD
     Route: 048
     Dates: start: 20250925, end: 20251012
  2. CLOPIDOGREL BISULFATE [Suspect]
     Active Substance: CLOPIDOGREL BISULFATE
     Indication: Cerebral infarction
  3. ASPIRIN [Suspect]
     Active Substance: ASPIRIN
     Indication: Thrombosis prophylaxis
     Dosage: 1 DF, QD
     Route: 048
     Dates: start: 20250925, end: 20251012
  4. ASPIRIN [Suspect]
     Active Substance: ASPIRIN
     Indication: Cerebral infarction

REACTIONS (4)
  - Subarachnoid haemorrhage [Not Recovered/Not Resolved]
  - Loss of consciousness [Not Recovered/Not Resolved]
  - Urinary incontinence [Not Recovered/Not Resolved]
  - Fall [Not Recovered/Not Resolved]

NARRATIVE: CASE EVENT DATE: 20251012
